FAERS Safety Report 6904380-4 (Version None)
Quarter: 2010Q3

REPORT INFORMATION
  Report Type: 
  Country: None (occurrence: None)
  Receive Date: 20100804
  Receipt Date: 20090509
  Transmission Date: 20110219
  Serious: No
  Sender: FDA-Public Use
  Company Number: US-PFIZER INC-2009185987

PATIENT
  Sex: Female

DRUGS (1)
  1. LYRICA [Suspect]
     Dosage: 75 MG, 2X/DAY

REACTIONS (6)
  - DYSURIA [None]
  - EUPHORIC MOOD [None]
  - FEELING ABNORMAL [None]
  - FLUID RETENTION [None]
  - GAIT DISTURBANCE [None]
  - OEDEMA PERIPHERAL [None]
